FAERS Safety Report 21982128 (Version 6)
Quarter: 2024Q1

REPORT INFORMATION
  Report Type: Report from Study
  Country: US (occurrence: US)
  Receive Date: 20230213
  Receipt Date: 20240214
  Transmission Date: 20240409
  Serious: Yes (Disabling)
  Sender: FDA-Public Use
  Company Number: US-002147023-NVSC2023US027781

PATIENT
  Age: 9 Year
  Sex: Female

DRUGS (4)
  1. ILARIS [Suspect]
     Active Substance: CANAKINUMAB
     Indication: Disseminated intravascular coagulation
     Dosage: 300 MG, QMO
     Route: 058
     Dates: start: 20191009
  2. ILARIS [Suspect]
     Active Substance: CANAKINUMAB
     Indication: Antiphospholipid syndrome
     Dosage: 300 MG, QMO
     Route: 058
     Dates: start: 20200120
  3. ILARIS [Suspect]
     Active Substance: CANAKINUMAB
     Dosage: 300 MG, QMO
     Route: 058
     Dates: start: 20230917
  4. LUPRON [Suspect]
     Active Substance: LEUPROLIDE ACETATE
     Indication: Precocious puberty
     Dosage: UNK
     Route: 065
     Dates: start: 20230721

REACTIONS (6)
  - Impetigo [Not Recovered/Not Resolved]
  - Tympanic membrane perforation [Not Recovered/Not Resolved]
  - Ear infection [Unknown]
  - Condition aggravated [Unknown]
  - Illness [Unknown]
  - Product use in unapproved indication [Unknown]

NARRATIVE: CASE EVENT DATE: 20230202
